FAERS Safety Report 9799964 (Version 2)
Quarter: 2015Q3

REPORT INFORMATION
  Report Type: Spontaneous
  Country: US (occurrence: US)
  Receive Date: 20140106
  Receipt Date: 20150806
  Transmission Date: 20151125
  Serious: No
  Sender: FDA-Public Use
  Company Number: US-GILEAD-2010-0030301

PATIENT
  Age: 72 Year
  Sex: Female
  Weight: 77.11 kg

DRUGS (13)
  1. CRESTOR [Concomitant]
     Active Substance: ROSUVASTATIN CALCIUM
  2. SPIRIVA [Concomitant]
     Active Substance: TIOTROPIUM BROMIDE MONOHYDRATE
  3. BIAXIN [Concomitant]
     Active Substance: CLARITHROMYCIN
  4. ZYFLO [Concomitant]
     Active Substance: ZILEUTON
  5. KAPIDEX [Concomitant]
     Active Substance: DEXLANSOPRAZOLE
  6. LASIX [Concomitant]
     Active Substance: FUROSEMIDE
  7. TAMBOCOR [Concomitant]
     Active Substance: FLECAINIDE ACETATE
  8. LETAIRIS [Suspect]
     Active Substance: AMBRISENTAN
     Indication: PULMONARY ARTERIAL HYPERTENSION
     Route: 048
     Dates: start: 20091117
  9. ALLEGRA [Concomitant]
     Active Substance: FEXOFENADINE HYDROCHLORIDE
  10. FLONASE [Concomitant]
     Active Substance: FLUTICASONE PROPIONATE
  11. COUMADIN [Concomitant]
     Active Substance: WARFARIN SODIUM
  12. CARAFATE [Concomitant]
     Active Substance: SUCRALFATE
  13. POTASSIUM CHLORIDE. [Concomitant]
     Active Substance: POTASSIUM CHLORIDE

REACTIONS (1)
  - Adverse drug reaction [Unknown]
